FAERS Safety Report 6783979-2 (Version None)
Quarter: 2010Q2

REPORT INFORMATION
  Report Type: 
  Country: None (occurrence: None)
  Receive Date: 20100622
  Receipt Date: 20100223
  Transmission Date: 20101027
  Serious: Yes (Other)
  Sender: FDA-Public Use
  Company Number: US-BRISTOL-MYERS SQUIBB COMPANY-14991772

PATIENT
  Sex: Male

DRUGS (3)
  1. SINEMET [Suspect]
     Dosage: 1DF=25/100MG;DECREASED TO HALF OF 25/100MG TABLET 3/DAY;TAKING FOR 8YRS.
  2. PLAVIX [Concomitant]
     Dosage: TAKING FOR 5 YRS.
  3. ASPIRIN [Concomitant]
     Dosage: TAKING FOR 5 YRS.

REACTIONS (4)
  - BLOOD PRESSURE DECREASED [None]
  - GAIT DISTURBANCE [None]
  - LOSS OF CONSCIOUSNESS [None]
  - MUSCULOSKELETAL STIFFNESS [None]
